FAERS Safety Report 6737031-2 (Version None)
Quarter: 2010Q2

REPORT INFORMATION
  Report Type: 
  Country: None (occurrence: None)
  Receive Date: 20100523
  Receipt Date: 20100517
  Transmission Date: 20101027
  Serious: Yes (Other)
  Sender: FDA-Public Use
  Company Number: FR-BRISTOL-MYERS SQUIBB COMPANY-14249106

PATIENT
  Age: 26 Year
  Sex: Female

DRUGS (1)
  1. ABILIFY [Suspect]
     Indication: PSYCHOTIC DISORDER
     Dosage: INTRRUPTED ON 2008 REINTRODUCED 3 WEEKS AGO AT 5MG/D
     Route: 048

REACTIONS (3)
  - ABORTION SPONTANEOUS [None]
  - PLACENTAL INFARCTION [None]
  - PREGNANCY [None]
